FAERS Safety Report 10229246 (Version 3)
Quarter: 2014Q2

REPORT INFORMATION
  Report Type: Report from Study
  Country: US (occurrence: US)
  Receive Date: 20140611
  Receipt Date: 20140618
  Transmission Date: 20141212
  Serious: Yes (Death, Life-Threatening, Hospitalization, Other)
  Sender: FDA-Public Use
  Company Number: US-BIOGENIDEC-2014BI047006

PATIENT
  Age: 82 Year
  Sex: Male
  Weight: 105 kg

DRUGS (17)
  1. TYSABRI [Suspect]
     Indication: ISCHAEMIC STROKE
     Route: 042
     Dates: start: 20140514, end: 20140514
  2. INSULIN [Concomitant]
     Indication: TYPE 2 DIABETES MELLITUS
     Route: 058
     Dates: start: 20140516
  3. HALDOL [Concomitant]
     Indication: AGITATION
     Route: 042
     Dates: start: 20140516, end: 20140518
  4. METOPROLOL [Concomitant]
     Indication: ATRIAL FIBRILLATION
     Route: 042
     Dates: start: 20140515, end: 20140516
  5. METOPROLOL [Concomitant]
     Indication: ATRIAL FIBRILLATION
     Route: 048
     Dates: start: 20140515, end: 20140516
  6. AMIODARONE [Concomitant]
     Indication: ATRIAL FIBRILLATION
     Route: 048
     Dates: start: 20140516, end: 20140517
  7. MELATONIN [Concomitant]
     Route: 048
     Dates: start: 20140517
  8. DOCUSATE [Concomitant]
     Dates: start: 20140515
  9. FAMOTIDINE [Concomitant]
     Route: 048
     Dates: start: 20140515
  10. SENNA [Concomitant]
     Dates: start: 20140515
  11. HEPARIN [Concomitant]
     Route: 058
     Dates: start: 20140514
  12. CLOPIDOGREL [Concomitant]
     Route: 048
     Dates: start: 20140514
  13. ATORVASTATIN [Concomitant]
     Route: 048
     Dates: start: 20140514
  14. ACETYLSALICYLIC ACID [Concomitant]
     Route: 048
     Dates: start: 20140514
  15. MAGNESIUM SULFATE [Concomitant]
     Route: 042
     Dates: start: 20140516
  16. POTASSIUM  CHLORIDE [Concomitant]
     Dates: start: 20140516
  17. CALCIUM GLUCONATE [Concomitant]
     Route: 042
     Dates: start: 20140514

REACTIONS (3)
  - Respiratory failure [Fatal]
  - Septic shock [Fatal]
  - Multi-organ failure [Fatal]
